FAERS Safety Report 4928080-5 (Version None)
Quarter: 2006Q1

REPORT INFORMATION
  Report Type: 
  Country: None (occurrence: None)
  Receive Date: 20060223
  Receipt Date: 20060209
  Transmission Date: 20060701
  Serious: Yes (Life-Threatening, Hospitalization)
  Sender: FDA-Public Use
  Company Number: 2006-US-00673

PATIENT
  Age: 19 Year
  Sex: Male
  Weight: 65 kg

DRUGS (6)
  1. CLOZAPINE [Suspect]
     Indication: SCHIZOPHRENIA, DISORGANISED TYPE
     Dosage: 400 MG, QD, ORAL
     Route: 048
  2. OLANZAPINE [Concomitant]
  3. VALPROATE SODIUM [Concomitant]
  4. AMISULPRIDE [Concomitant]
  5. PAPAVER SOMNIFERUM TINCTURE [Concomitant]
  6. VALPROMIDE [Concomitant]

REACTIONS (14)
  - ABDOMINAL DISCOMFORT [None]
  - ABDOMINAL PAIN [None]
  - BLOOD CREATINE PHOSPHOKINASE INCREASED [None]
  - BODY TEMPERATURE INCREASED [None]
  - CONSTIPATION [None]
  - FAECALOMA [None]
  - GASTROINTESTINAL NECROSIS [None]
  - LARGE INTESTINAL ULCER [None]
  - MALAISE [None]
  - METABOLIC ACIDOSIS [None]
  - OEDEMA MUCOSAL [None]
  - RENAL FAILURE [None]
  - SEDATION [None]
  - SHOCK [None]
